FAERS Safety Report 9460514 (Version 1)
Quarter: 2013Q3

REPORT INFORMATION
  Report Type: Report from Study
  Country: CA (occurrence: CA)
  Receive Date: 20130815
  Receipt Date: 20130815
  Transmission Date: 20140515
  Serious: Yes (Other)
  Sender: FDA-Public Use
  Company Number: CA-ABBOTT-13P-028-1131831-00

PATIENT
  Age: 59 Year
  Sex: Female
  Weight: 79 kg

DRUGS (11)
  1. HUMIRA [Suspect]
     Indication: CROHN^S DISEASE
     Route: 058
     Dates: start: 20120105, end: 201303
  2. HUMIRA [Suspect]
     Dates: start: 201304
  3. IMURAN [Concomitant]
     Indication: CROHN^S DISEASE
     Route: 048
     Dates: start: 1997
  4. COUMADIN [Concomitant]
     Indication: ANTIPHOSPHOLIPID SYNDROME
     Route: 048
     Dates: start: 1996
  5. ASPIRIN [Concomitant]
     Indication: HYPERTENSION
     Route: 048
  6. LOSEC [Concomitant]
     Indication: PRODUCT USED FOR UNKNOWN INDICATION
     Route: 048
  7. CRESTOR [Concomitant]
     Indication: ANTIPHOSPHOLIPID SYNDROME
  8. ATENOLOL [Concomitant]
     Indication: HYPERTENSION
     Route: 048
  9. RAMIPRIL HCTZ [Concomitant]
     Indication: HYPERTENSION
     Dosage: 5/12.5 MG
     Route: 048
  10. VITAMIN D [Concomitant]
     Indication: VITAMIN SUPPLEMENTATION
  11. VITAMIN B12 [Concomitant]
     Indication: VITAMIN SUPPLEMENTATION
     Route: 048

REACTIONS (6)
  - Upper extremity mass [Recovering/Resolving]
  - Perineal infection [Not Recovered/Not Resolved]
  - Injection site pain [Not Recovered/Not Resolved]
  - Impaired healing [Recovered/Resolved]
  - Drug ineffective [Not Recovered/Not Resolved]
  - Purulent discharge [Not Recovered/Not Resolved]
